FAERS Safety Report 5296024-5 (Version None)
Quarter: 2007Q2

REPORT INFORMATION
  Report Type: 
  Country: None (occurrence: None)
  Receive Date: 20070413
  Receipt Date: 20070402
  Transmission Date: 20071010
  Serious: Yes (Hospitalization)
  Sender: FDA-Public Use
  Company Number: PHBS2007JP06047

PATIENT
  Sex: Female

DRUGS (1)
  1. ZADITEN [Suspect]
     Indication: NASOPHARYNGITIS
     Route: 048

REACTIONS (2)
  - LIVER DISORDER [None]
  - URINE COLOUR ABNORMAL [None]
